FAERS Safety Report 9092584 (Version 1)
Quarter: 2013Q1

REPORT INFORMATION
  Report Type: Spontaneous
  Country: US (occurrence: None)
  Receive Date: 20130213
  Receipt Date: 20130213
  Transmission Date: 20140127
  Serious: Yes (Other)
  Sender: FDA-Public Use
  Company Number: None

PATIENT
  Age: 38 Year
  Sex: Female
  Weight: 72.12 kg

DRUGS (4)
  1. CYMBALTA [Suspect]
     Indication: ANXIETY
     Route: 048
     Dates: start: 20111219, end: 20120318
  2. CYMBALTA [Suspect]
     Indication: DEPRESSION
     Route: 048
     Dates: start: 20111219, end: 20120318
  3. LEXAPRO [Suspect]
     Indication: ANXIETY
     Route: 048
  4. LEXAPRO [Suspect]
     Indication: DEPRESSION
     Route: 048

REACTIONS (2)
  - Paraesthesia [None]
  - Hypersomnia [None]
